FAERS Safety Report 7563471-8 (Version None)
Quarter: 2011Q2

REPORT INFORMATION
  Report Type: 
  Country: None (occurrence: None)
  Receive Date: 20110621
  Receipt Date: 20110621
  Transmission Date: 20111010
  Serious: Yes (Other)
  Sender: FDA-Public Use
  Company Number: None

PATIENT
  Age: 33 Year
  Sex: Female
  Weight: 72.5755 kg

DRUGS (1)
  1. MEFLOQUINE HYDROCHLORIDE [Suspect]
     Indication: MALARIA PROPHYLAXIS
     Dosage: WEEKLY PO
     Route: 048
     Dates: start: 20070325, end: 20070408

REACTIONS (5)
  - NIGHTMARE [None]
  - FEAR [None]
  - PSYCHOTIC DISORDER [None]
  - INSOMNIA [None]
  - DEPRESSION [None]
